FAERS Safety Report 7111966-3 (Version None)
Quarter: 2010Q4

REPORT INFORMATION
  Report Type: 
  Country: None (occurrence: None)
  Receive Date: 20101119
  Receipt Date: 20101109
  Transmission Date: 20110411
  Serious: Yes (Other)
  Sender: FDA-Public Use
  Company Number: US-ELI_LILLY_AND_COMPANY-US201010007306

PATIENT
  Age: 78 Year
  Sex: Male

DRUGS (6)
  1. CIALIS [Suspect]
     Indication: ERECTILE DYSFUNCTION
     Dosage: 100 MG, UNK
  2. CIALIS [Suspect]
     Dosage: 10 MG, UNK
  3. CIALIS [Suspect]
     Dosage: 20 MG, UNK
  4. DIGITALIS TAB [Concomitant]
  5. VERAPAMIL [Concomitant]
  6. AVAPRO [Concomitant]

REACTIONS (4)
  - ANGLE CLOSURE GLAUCOMA [None]
  - BLINDNESS [None]
  - OCULAR VASCULAR DISORDER [None]
  - OVERDOSE [None]
